FAERS Safety Report 25221081 (Version 1)
Quarter: 2025Q2

REPORT INFORMATION
  Report Type: Spontaneous
  Country: US (occurrence: None)
  Receive Date: 20250419
  Receipt Date: 20250419
  Transmission Date: 20250716
  Serious: No
  Sender: FDA-CTU
  Company Number: None

PATIENT
  Age: 72 Year
  Sex: Female
  Weight: 54 kg

DRUGS (5)
  1. TREMFYA [Suspect]
     Active Substance: GUSELKUMAB
     Route: 058
  2. NORCO [Concomitant]
     Active Substance: ACETAMINOPHEN\HYDROCODONE BITARTRATE
  3. hydroxycholoquine [Concomitant]
  4. ambein [Concomitant]
  5. ARMOUR THYROID [Concomitant]
     Active Substance: THYROID, PORCINE

REACTIONS (4)
  - Headache [None]
  - Dizziness [None]
  - Burning sensation [None]
  - Dysuria [None]

NARRATIVE: CASE EVENT DATE: 20250401
